FAERS Safety Report 10762063 (Version 2)
Quarter: 2015Q1

REPORT INFORMATION
  Report Type: Other
  Country: US (occurrence: US)
  Receive Date: 20150204
  Receipt Date: 20150317
  Transmission Date: 20150721
  Serious: Yes (Life-Threatening, Hospitalization, Disabling, Other)
  Sender: FDA-Public Use
  Company Number: US-SHIRE-US201500878

PATIENT
  Age: 7 Year
  Sex: Male
  Weight: 29 kg

DRUGS (11)
  1. VALIUM [Concomitant]
     Active Substance: DIAZEPAM
     Indication: PAIN MANAGEMENT
     Dosage: 1.2 MG, OTHER(Q 6 HOURS)
     Route: 050
  2. BACLOFEN. [Concomitant]
     Active Substance: BACLOFEN
     Dosage: 10 MG, 3X/DAY:TID
     Route: 050
     Dates: start: 2014, end: 2014
  3. METHADONE [Concomitant]
     Active Substance: METHADONE HYDROCHLORIDE
     Indication: PAIN MANAGEMENT
     Dosage: UNK, UNKNOWN
     Route: 065
     Dates: end: 20141208
  4. CLONIDINE. [Concomitant]
     Active Substance: CLONIDINE
     Indication: PRODUCT USED FOR UNKNOWN INDICATION
     Dosage: 0.076 MG, OTHER(EVERY 6 HOURS)
     Route: 050
  5. SIMETHICONE [Concomitant]
     Active Substance: DIMETHICONE\SILICON DIOXIDE\SIMETHICONE
     Indication: DISCOMFORT
     Dosage: 40 MG, 4X/DAY:QID
     Route: 050
  6. BACLOFEN. [Concomitant]
     Active Substance: BACLOFEN
     Indication: MUSCLE RIGIDITY
     Dosage: 4 MG, UNKNOWN
     Route: 065
     Dates: end: 2014
  7. BACLOFEN. [Concomitant]
     Active Substance: BACLOFEN
     Dosage: 8 MG, UNKNOWN
     Route: 065
     Dates: start: 2014, end: 2014
  8. MIRALAX [Concomitant]
     Active Substance: POLYETHYLENE GLYCOL 3350
     Indication: ABDOMINAL DISTENSION
     Dosage: 8.5 G, 2X/DAY:BID
     Route: 050
  9. COLACE [Concomitant]
     Active Substance: DOCUSATE SODIUM
     Indication: ABDOMINAL DISCOMFORT
     Dosage: 5 ML, 2X/DAY:BID
     Route: 050
  10. SENNA [Concomitant]
     Active Substance: SENNA LEAF\SENNOSIDES\SENNOSIDES A AND B
     Indication: ABDOMINAL DISCOMFORT
     Dosage: 5 ML, 2X/DAY:BID
     Route: 050
  11. ELAPRASE [Suspect]
     Active Substance: IDURSULFASE
     Indication: MUCOPOLYSACCHARIDOSIS II
     Dosage: 12 MG (2 VIALS), 1X/WEEK
     Route: 041
     Dates: start: 20070725

REACTIONS (14)
  - Acute kidney injury [Unknown]
  - Pulmonary oedema [Unknown]
  - Device related infection [Recovered/Resolved]
  - Transverse sinus thrombosis [Recovered/Resolved with Sequelae]
  - Pneumonia mycoplasmal [Unknown]
  - Respiratory distress [Unknown]
  - Intraventricular haemorrhage [Recovered/Resolved with Sequelae]
  - Viral infection [Unknown]
  - Coma [Not Recovered/Not Resolved]
  - Pyrexia [Unknown]
  - Pseudomonas aeruginosa meningitis [Recovered/Resolved with Sequelae]
  - Apallic syndrome [Not Recovered/Not Resolved]
  - Cerebellar infarction [Recovered/Resolved with Sequelae]
  - Seizure [Not Recovered/Not Resolved]

NARRATIVE: CASE EVENT DATE: 201409
